FAERS Safety Report 7230982-4 (Version None)
Quarter: 2011Q1

REPORT INFORMATION
  Report Type: 
  Country: None (occurrence: None)
  Receive Date: 20110118
  Receipt Date: 20110112
  Transmission Date: 20110831
  Serious: Yes (Hospitalization)
  Sender: FDA-Public Use
  Company Number: IT-AMGEN-UK307516

PATIENT

DRUGS (3)
  1. RIBAVIRIN [Concomitant]
     Dosage: 800 MG, UNK
     Route: 048
  2. GRANULOKINE [Suspect]
     Indication: NEUTROPENIA
     Dosage: 60 IU, QCYCLE
     Route: 058
     Dates: start: 20080101, end: 20080401
  3. PEGINTERFERON ALFA-2A [Suspect]
     Dosage: 180 MG, QWK
     Route: 058
     Dates: start: 20070505, end: 20080401

REACTIONS (1)
  - PSORIASIS [None]
